FAERS Safety Report 22909748 (Version 2)
Quarter: 2024Q2

REPORT INFORMATION
  Report Type: Spontaneous
  Country: US (occurrence: US)
  Receive Date: 20230906
  Receipt Date: 20240404
  Transmission Date: 20240715
  Serious: Yes (Hospitalization)
  Sender: FDA-Public Use
  Company Number: US-UCBSA-2023043731

PATIENT
  Age: 69 Year
  Sex: Female
  Weight: 122.45 kg

DRUGS (1)
  1. CIMZIA [Suspect]
     Active Substance: CERTOLIZUMAB PEGOL
     Indication: Rheumatoid arthritis
     Dosage: 400 MILLIGRAM, EV 4 WEEKS
     Route: 058
     Dates: start: 202307

REACTIONS (2)
  - Abdominal pain upper [Unknown]
  - Product availability issue [Unknown]

NARRATIVE: CASE EVENT DATE: 20230831
